FAERS Safety Report 12341607 (Version 3)
Quarter: 2016Q2

REPORT INFORMATION
  Report Type: Spontaneous
  Country: NL (occurrence: NL)
  Receive Date: 20160506
  Receipt Date: 20160628
  Transmission Date: 20160815
  Serious: Yes (Hospitalization, Other)
  Sender: FDA-Public Use
  Company Number: NL-PFIZER INC-2015278495

PATIENT
  Age: 68 Year
  Sex: Male

DRUGS (13)
  1. SOMAVERT [Suspect]
     Active Substance: PEGVISOMANT
     Dosage: 40 MG, WEEKLY
     Dates: start: 20150617
  2. KALIUMCHLORIDE [Concomitant]
     Indication: PRODUCT USED FOR UNKNOWN INDICATION
     Dosage: 600 MG, 2X/DAY
  3. TESTOSTERON /00103101/ [Concomitant]
     Active Substance: TESTOSTERONE
     Indication: BLOOD TESTOSTERONE DECREASED
     Dosage: 250 MG, 1X/4 WEEKS
  4. SOMAVERT [Suspect]
     Active Substance: PEGVISOMANT
     Dosage: 30 MG, 1X/WEEK
     Route: 058
     Dates: start: 20150817
  5. FENPROCOUMON [Concomitant]
     Active Substance: PHENPROCOUMON
     Indication: ANTICOAGULANT THERAPY
     Dosage: 3 MG, ACCORDING TO SCHEDULE
  6. METOPROLOL. [Concomitant]
     Active Substance: METOPROLOL
     Dosage: 200 MG, 1X/DAY
  7. LEVOTHYROXINE. [Concomitant]
     Active Substance: LEVOTHYROXINE
     Dosage: 100 UG, 1X/DAY
  8. SIMVASTATINE [Concomitant]
     Active Substance: SIMVASTATIN
     Indication: PROPHYLAXIS
     Dosage: 40 MG, 1X/DAY
  9. BISOPROLOL [Concomitant]
     Active Substance: BISOPROLOL
     Dosage: 1.25 MG, 1X/DAY
  10. BUMETANIDE. [Concomitant]
     Active Substance: BUMETANIDE
     Indication: DIURETIC THERAPY
     Dosage: 5 MG, 2X/DAY
  11. HYDROCORTISON /00028601/ [Concomitant]
     Active Substance: HYDROCORTISONE
     Dosage: 30 MG, 1X/DAY
  12. SOMAVERT [Suspect]
     Active Substance: PEGVISOMANT
     Indication: ACROMEGALY
     Dosage: 40 MG, WEEKLY
     Route: 058
     Dates: start: 20130118
  13. ALLOPURINOL. [Concomitant]
     Active Substance: ALLOPURINOL
     Indication: GOUT
     Dosage: 300 MG, 1X/DAY

REACTIONS (3)
  - Pneumonia [Recovering/Resolving]
  - Adrenocortical insufficiency acute [Recovering/Resolving]
  - Off label use [Unknown]

NARRATIVE: CASE EVENT DATE: 20130118
